APPROVED DRUG PRODUCT: DROXIDOPA
Active Ingredient: DROXIDOPA
Strength: 300MG
Dosage Form/Route: CAPSULE;ORAL
Application: A212835 | Product #003
Applicant: HIKMA PHARMACEUTICALS USA INC
Approved: Feb 18, 2021 | RLD: No | RS: No | Type: DISCN